FAERS Safety Report 9096774 (Version 1)
Quarter: 2013Q1

REPORT INFORMATION
  Report Type: Spontaneous
  Country: CA (occurrence: CA)
  Receive Date: 20130211
  Receipt Date: 20130211
  Transmission Date: 20140127
  Serious: Yes (Life-Threatening)
  Sender: FDA-Public Use
  Company Number: CA-ELI_LILLY_AND_COMPANY-CA201302000465

PATIENT
  Age: 67 Year
  Sex: Female
  Weight: 52.15 kg

DRUGS (6)
  1. CYMBALTA [Suspect]
     Dosage: 30 MG, QD
     Route: 048
  2. CYMBALTA [Suspect]
     Dosage: 60 MG, QD
     Route: 048
  3. LYRICA [Concomitant]
  4. MICARDIS [Concomitant]
  5. NEXIUM [Concomitant]
  6. RIVOTRIL [Concomitant]

REACTIONS (16)
  - Condition aggravated [Unknown]
  - Diaphragmatic disorder [Unknown]
  - Dyskinesia [Unknown]
  - Erythema [Unknown]
  - Facial spasm [Unknown]
  - Fatigue [Unknown]
  - Flushing [Unknown]
  - Head discomfort [Unknown]
  - Headache [Unknown]
  - Hypertension [Unknown]
  - Muscle spasms [Unknown]
  - Nausea [Unknown]
  - Neck pain [Unknown]
  - Pain [Unknown]
  - Paraesthesia [Unknown]
  - Somnolence [Unknown]
